FAERS Safety Report 7129203-2 (Version None)
Quarter: 2010Q4

REPORT INFORMATION
  Report Type: 
  Country: None (occurrence: None)
  Receive Date: 20101130
  Receipt Date: 20101122
  Transmission Date: 20110411
  Serious: Yes (Hospitalization)
  Sender: FDA-Public Use
  Company Number: CG-MERCK-1011USA03241

PATIENT
  Age: 25 Year
  Sex: Male

DRUGS (1)
  1. STROMECTOL [Suspect]
     Indication: ONCHOCERCIASIS
     Route: 048
     Dates: start: 20101009

REACTIONS (5)
  - ENCEPHALOPATHY [None]
  - GAIT DISTURBANCE [None]
  - HEADACHE [None]
  - OLIGURIA [None]
  - VERTIGO [None]
